FAERS Safety Report 16600788 (Version 2)
Quarter: 2019Q3

REPORT INFORMATION
  Report Type: Spontaneous
  Country: CN (occurrence: CN)
  Receive Date: 20190720
  Receipt Date: 20190805
  Transmission Date: 20191004
  Serious: Yes (Other)
  Sender: FDA-Public Use
  Company Number: CN-AMGEN-CHNSP2019114097

PATIENT
  Age: 56 Year
  Sex: Female

DRUGS (4)
  1. BAYASPIRIN [Concomitant]
     Active Substance: ASPIRIN
  2. REPATHA [Suspect]
     Active Substance: EVOLOCUMAB
     Indication: LOW DENSITY LIPOPROTEIN ABNORMAL
  3. REPATHA [Suspect]
     Active Substance: EVOLOCUMAB
     Indication: PROPHYLAXIS
     Dosage: 140 MILLIGRAM, Q2WK
     Route: 058
     Dates: start: 20190622
  4. CILOSTAZOL. [Concomitant]
     Active Substance: CILOSTAZOL

REACTIONS (3)
  - Injection site induration [Unknown]
  - Gastrointestinal haemorrhage [Recovered/Resolved]
  - Injection site haemorrhage [Unknown]

NARRATIVE: CASE EVENT DATE: 2019
